FAERS Safety Report 6444775-9 (Version None)
Quarter: 2009Q4

REPORT INFORMATION
  Report Type: 
  Country: None (occurrence: None)
  Receive Date: 20091118
  Receipt Date: 20091110
  Transmission Date: 20100525
  Serious: Yes (Hospitalization)
  Sender: FDA-Public Use
  Company Number: B0603115A

PATIENT
  Sex: Female

DRUGS (9)
  1. AUGMENTIN '125' [Suspect]
     Dosage: 1000MG THREE TIMES PER DAY
     Route: 048
     Dates: start: 20080523, end: 20080603
  2. FLAGYL [Suspect]
     Indication: DRUG USE FOR UNKNOWN INDICATION
     Route: 048
     Dates: start: 20080601, end: 20080603
  3. RIVOTRIL [Concomitant]
     Route: 065
  4. NEO-MERCAZOLE TAB [Concomitant]
     Route: 065
  5. PREVISCAN [Concomitant]
     Route: 065
  6. TENORDATE [Concomitant]
     Route: 065
  7. PRAXILENE [Concomitant]
     Route: 065
  8. GLUCOPHAGE [Concomitant]
     Route: 065
  9. AERIUS [Concomitant]
     Route: 065

REACTIONS (6)
  - ACUTE GENERALISED EXANTHEMATOUS PUSTULOSIS [None]
  - DIARRHOEA [None]
  - ERYTHEMA [None]
  - HALLUCINATION, VISUAL [None]
  - LEUKOCYTOSIS [None]
  - RASH PUSTULAR [None]
